FAERS Safety Report 6142334-9 (Version None)
Quarter: 2009Q2

REPORT INFORMATION
  Report Type: 
  Country: None (occurrence: None)
  Receive Date: 20090403
  Receipt Date: 20090326
  Transmission Date: 20091009
  Serious: Yes (Other)
  Sender: FDA-Public Use
  Company Number: US-JNJFOC-20090307175

PATIENT
  Age: 73 Year
  Sex: Female

DRUGS (5)
  1. EXTRA STRENGTH TYLENOL [Suspect]
     Indication: INSOMNIA
     Route: 048
  2. EXTRA STRENGTH TYLENOL [Suspect]
     Indication: PAIN
     Route: 048
  3. TOPROL-XL [Concomitant]
  4. MUCINEX [Concomitant]
     Indication: SINUS DISORDER
  5. CIPROFLOXACIN HCL [Concomitant]
     Indication: URINARY TRACT INFECTION

REACTIONS (3)
  - DYSARTHRIA [None]
  - FACIAL PALSY [None]
  - SOMNOLENCE [None]
